FAERS Safety Report 7369697-0 (Version None)
Quarter: 2011Q1

REPORT INFORMATION
  Report Type: 
  Country: None (occurrence: None)
  Receive Date: 20110323
  Receipt Date: 20090224
  Transmission Date: 20110831
  Serious: Yes (Death, Other)
  Sender: FDA-Public Use
  Company Number: US-BAYER-200914099NA

PATIENT
  Sex: Female
  Weight: 61.678 kg

DRUGS (25)
  1. TRASYLOL [Suspect]
     Indication: MITRAL VALVE REPLACEMENT
     Dosage: 200 ML; DRIP AT 600ML/HR FOR THE FIRST 200 ML. THEN 50/ML/HR.
     Dates: start: 20070323, end: 20070323
  2. NITROGLYCERIN [Concomitant]
     Route: 042
  3. COUMADIN [Concomitant]
     Route: 048
  4. MILRINONE [Concomitant]
     Dosage: UNK
     Route: 042
     Dates: start: 20070329, end: 20070330
  5. DEMADEX [Concomitant]
     Dosage: UNK
     Route: 042
     Dates: start: 20070402
  6. INSULIN [Concomitant]
     Route: 042
  7. LEVOPHED [Concomitant]
     Dosage: UNK
     Route: 042
     Dates: end: 20070329
  8. TENORMIN [Concomitant]
     Dosage: 12.5MG
     Route: 048
  9. PROTAMINE SULFATE [Concomitant]
     Dosage: 500MG
  10. LASIX [Concomitant]
  11. PLATELETS [Concomitant]
     Dosage: 4 UNITS
     Route: 042
  12. VERAPAMIL [Concomitant]
     Dosage: 240 MG
     Route: 048
  13. ZOCOR [Concomitant]
     Dosage: 20 MG
     Route: 048
  14. METOLAZONE [Concomitant]
     Dosage: UNK
     Dates: start: 20070407
  15. VASOPRESSIN [Concomitant]
     Indication: HYPOTENSION
     Dosage: UNK
     Dates: start: 20070408
  16. TRASYLOL [Suspect]
     Indication: AORTIC VALVE REPLACEMENT
     Dosage: 2 ML
     Route: 042
     Dates: start: 20070323
  17. IMDUR [Concomitant]
     Dosage: 120MG BID
  18. HEPARIN [Concomitant]
     Dosage: 54000 UNITS
     Route: 042
  19. SODIUM NITROPRUSSIDE [Concomitant]
     Dosage: 0.04 MG TOTAL
     Route: 042
  20. DOBUTAMINE [Concomitant]
     Dosage: 29.42MG
     Route: 042
  21. RED BLOOD CELLS [Concomitant]
     Dosage: 7 UNITS
     Route: 042
  22. VANCOMYCIN [Concomitant]
     Dosage: 2000 MG TOTAL
     Route: 042
     Dates: start: 20070330
  23. AZTREONAM [Concomitant]
     Dosage: UNK
     Route: 042
     Dates: start: 20070330
  24. ZAROXOLYN [Concomitant]
     Dosage: UNK
     Dates: start: 20070405
  25. RENAGEL [Concomitant]
     Dosage: 800 MG 3 TIMES A DAY
     Dates: start: 20070405

REACTIONS (13)
  - RENAL IMPAIRMENT [None]
  - STRESS [None]
  - MULTI-ORGAN FAILURE [None]
  - RENAL FAILURE [None]
  - ANXIETY [None]
  - FEAR [None]
  - PAIN [None]
  - INJURY [None]
  - DEATH [None]
  - ANHEDONIA [None]
  - UNEVALUABLE EVENT [None]
  - EMOTIONAL DISTRESS [None]
  - RENAL INJURY [None]
